FAERS Safety Report 20215903 (Version 1)
Quarter: 2021Q4

REPORT INFORMATION
  Report Type: Spontaneous
  Country: ES (occurrence: ES)
  Receive Date: 20211222
  Receipt Date: 20211222
  Transmission Date: 20220303
  Serious: Yes (Hospitalization)
  Sender: FDA-Public Use
  Company Number: ES-SUN PHARMACEUTICAL INDUSTRIES LTD-2021RR-321182

PATIENT
  Age: 39 Year
  Sex: Female
  Weight: 93 kg

DRUGS (8)
  1. LETROZOLE [Suspect]
     Active Substance: LETROZOLE
     Indication: Invasive ductal breast carcinoma
     Dosage: 200 MILLIGRAM, QD
     Route: 048
     Dates: start: 20210928
  2. LETROZOLE [Suspect]
     Active Substance: LETROZOLE
     Dosage: 2.5 MILLIGRAM, QD
     Route: 048
     Dates: start: 20210928
  3. LETROZOLE [Suspect]
     Active Substance: LETROZOLE
     Dosage: 200 MILLIGRAM, QD
     Route: 048
  4. LETROZOLE [Suspect]
     Active Substance: LETROZOLE
     Dosage: 2.5 MILLIGRAM, QD
     Route: 048
  5. GOSERELIN [Suspect]
     Active Substance: GOSERELIN
     Indication: Invasive ductal breast carcinoma
     Dosage: 3.6 MILLIGRAM,ONCE EVERY 28 DAYS
     Route: 058
     Dates: start: 20210910, end: 20210910
  6. GOSERELIN [Suspect]
     Active Substance: GOSERELIN
     Dosage: 3.6 MILLIGRAM,ONCE EVERY 28 DAYS
     Route: 058
  7. PALBOCICLIB [Suspect]
     Active Substance: PALBOCICLIB
     Indication: Invasive ductal breast carcinoma
     Dosage: 125 MILLIGRAM, QD
     Route: 048
     Dates: start: 20210928
  8. PALBOCICLIB [Suspect]
     Active Substance: PALBOCICLIB
     Dosage: 125 MILLIGRAM, QD
     Route: 048

REACTIONS (1)
  - Cerebrovascular accident [Not Recovered/Not Resolved]

NARRATIVE: CASE EVENT DATE: 20211023
